FAERS Safety Report 10563993 (Version 3)
Quarter: 2014Q4

REPORT INFORMATION
  Report Type: Spontaneous
  Country: US (occurrence: US)
  Receive Date: 20141104
  Receipt Date: 20141230
  Transmission Date: 20150529
  Serious: No
  Sender: FDA-Public Use
  Company Number: US-PFIZER INC-2014303637

PATIENT
  Age: 60 Year
  Sex: Male
  Weight: 77 kg

DRUGS (11)
  1. ATORVASTATIN CALCIUM. [Suspect]
     Active Substance: ATORVASTATIN CALCIUM
     Indication: CARDIOVASCULAR DISORDER
  2. COMBIGAN [Concomitant]
     Active Substance: BRIMONIDINE TARTRATE\TIMOLOL MALEATE
     Indication: INTRAOCULAR PRESSURE INCREASED
     Dosage: 0.2% - 0.5%, 1 DROP IN THE MORNING AND 1 DROP IN THE EVENING, IN EACH EYE
     Route: 047
  3. LUMIGAN [Concomitant]
     Active Substance: BIMATOPROST
     Indication: INTRAOCULAR PRESSURE INCREASED
     Dosage: 0.03%, 1 DROP A DAY IN RIGHT EYE
     Route: 047
  4. UBIQUINOL [Concomitant]
     Indication: UBIQUINONE DECREASED
     Dosage: 100 MG, 1X/DAY
     Route: 048
  5. OMEGA-3 FATTY ACIDS [Concomitant]
     Active Substance: OMEGA-3 FATTY ACIDS
     Indication: SUPPLEMENTATION THERAPY
     Dosage: 1500 MG, 5 ML (1 TEASPONFUL), 1X/DAY
     Route: 048
  6. ASPIRIN. [Concomitant]
     Active Substance: ASPIRIN
     Dosage: 81 MG, DAILY
  7. ATORVASTATIN CALCIUM. [Suspect]
     Active Substance: ATORVASTATIN CALCIUM
     Indication: ATRIOVENTRICULAR BLOCK
     Dosage: 10 MG, 1X/DAY
     Dates: start: 20120101, end: 20141030
  8. ATORVASTATIN CALCIUM. [Suspect]
     Active Substance: ATORVASTATIN CALCIUM
     Indication: LOW DENSITY LIPOPROTEIN INCREASED
  9. OLIVE LEAF [Concomitant]
     Dosage: 150 MG, 1X/DAY
     Route: 048
  10. ATORVASTATIN CALCIUM. [Suspect]
     Active Substance: ATORVASTATIN CALCIUM
     Indication: BLOOD CHOLESTEROL INCREASED
     Dosage: 20 MG, UNK
     Route: 048
  11. LUTEIN [Concomitant]
     Active Substance: LUTEIN
     Dosage: 20 MG, 1X/DAY
     Route: 048

REACTIONS (2)
  - Blood glucose increased [Recovered/Resolved]
  - Blood thyroid stimulating hormone increased [Recovered/Resolved]

NARRATIVE: CASE EVENT DATE: 20130201
